FAERS Safety Report 13695243 (Version 1)
Quarter: 2017Q2

REPORT INFORMATION
  Report Type: Spontaneous
  Country: DE (occurrence: DE)
  Receive Date: 20170627
  Receipt Date: 20170627
  Transmission Date: 20170830
  Serious: Yes (Other)
  Sender: FDA-Public Use
  Company Number: DE-BAYER-2017-117930

PATIENT
  Age: 90 Year
  Sex: Male

DRUGS (1)
  1. ASPIRIN PROTECT 100 MG [Suspect]
     Active Substance: ASPIRIN
     Dosage: UNK
     Dates: start: 1988

REACTIONS (3)
  - Vascular graft occlusion [None]
  - Intestinal haemorrhage [Recovered/Resolved]
  - Diverticulum [None]

NARRATIVE: CASE EVENT DATE: 2013
